FAERS Safety Report 8356176 (Version 2)
Quarter: 2013Q2

REPORT INFORMATION
  Report Type: Spontaneous
  Country: US (occurrence: None)
  Receive Date: 20111221
  Receipt Date: 20121227
  Transmission Date: 20140414
  Serious: Yes (Hospitalization)
  Sender: FDA-Public Use
  Company Number: PHHY2011US53857

PATIENT
  Age: 35 Year
  Sex: Male
  Weight: 74.4 kg

DRUGS (2)
  1. EXJADE [Suspect]
     Indication: HAEMOCHROMATOSIS
     Dosage: 1500MG, DAILY, ORAL
     Route: 048
     Dates: start: 200804
  2. EXJADE [Suspect]
     Indication: TRANSFUSION RELATED COMPLICATION
     Dosage: 1500MG, DAILY, ORAL
     Route: 048
     Dates: start: 200804

REACTIONS (1)
  - SICKLE CELL ANAEMIA WITH CRISIS [None]
